FAERS Safety Report 22019265 (Version 2)
Quarter: 2023Q1

REPORT INFORMATION
  Report Type: Other
  Country: GB (occurrence: None)
  Receive Date: 20230222
  Receipt Date: 20230303
  Transmission Date: 20230418
  Serious: Yes (Hospitalization)
  Sender: FDA-Public Use
  Company Number: GB-ROCHE-3290226

PATIENT
  Sex: Female

DRUGS (7)
  1. TOCILIZUMAB [Suspect]
     Active Substance: TOCILIZUMAB
     Indication: Rheumatoid arthritis
     Route: 058
     Dates: start: 202210
  2. TRAMADOL [Concomitant]
     Active Substance: TRAMADOL
  3. ACETAMINOPHEN [Concomitant]
     Active Substance: ACETAMINOPHEN
  4. FLUOXETINE [Concomitant]
     Active Substance: FLUOXETINE HYDROCHLORIDE
  5. AMLODIPINE [Concomitant]
     Active Substance: AMLODIPINE BESYLATE
     Indication: Blood pressure measurement
  6. OMEPRAZOLE [Concomitant]
     Active Substance: OMEPRAZOLE
  7. FOLIC ACID [Concomitant]
     Active Substance: FOLIC ACID

REACTIONS (2)
  - Infection [Unknown]
  - Drug ineffective [Unknown]
